FAERS Safety Report 7955179-1 (Version None)
Quarter: 2011Q4

REPORT INFORMATION
  Report Type: 
  Country: None (occurrence: None)
  Receive Date: 20111202
  Receipt Date: 20111121
  Transmission Date: 20120403
  Serious: Yes (Other)
  Sender: FDA-Public Use
  Company Number: PHHY2011FI68453

PATIENT
  Age: 27 Year
  Sex: Female

DRUGS (11)
  1. OPAMOX [Concomitant]
     Dosage: 15 MG, ONCE DAILY WHEN NEEDED
  2. CLOZAPINE [Interacting]
     Dosage: 400 MG
  3. ZOLOFT [Interacting]
     Dosage: 1 DF/DAY
     Route: 048
  4. CLOZAPINE [Interacting]
     Dosage: 450 MG
  5. OPAMOX [Concomitant]
     Dosage: 7.5 MG, DOSE OF ONE TABLET THREE TIMES A DAY
     Route: 048
  6. FLUANXOL [Concomitant]
     Dosage: 1 MG, ONE TABLET THREE TIMES A DAY
     Route: 048
  7. CLOZAPINE [Interacting]
     Dosage: 300 MG,
     Route: 048
     Dates: start: 20080101
  8. CLOZAPINE [Interacting]
     Dosage: 550 MG
     Route: 048
     Dates: start: 20110708, end: 20110729
  9. CLOZAPINE [Interacting]
     Dosage: 500 MG,
     Route: 048
     Dates: start: 20110729
  10. ZOPINOX [Concomitant]
     Dosage: 7.5 MG, ONCE DAILY WHEN NEEDED
  11. CLOZAPINE [Suspect]
     Route: 048
     Dates: start: 20020301

REACTIONS (4)
  - ANTIPSYCHOTIC DRUG LEVEL INCREASED [None]
  - ELECTROCARDIOGRAM QT PROLONGED [None]
  - DRUG INTERACTION [None]
  - DEPRESSED MOOD [None]
